FAERS Safety Report 5812799-8 (Version None)
Quarter: 2008Q3

REPORT INFORMATION
  Report Type: 
  Country: None (occurrence: None)
  Receive Date: 20080714
  Receipt Date: 20080703
  Transmission Date: 20090109
  Serious: Yes (Other)
  Sender: FDA-Public Use
  Company Number: 163-21880-06101389

PATIENT
  Age: 64 Year
  Sex: Female

DRUGS (5)
  1. REVLIMID [Suspect]
     Indication: MULTIPLE MYELOMA
     Dosage: 25 MG, X21 DAYS EVERY 28 DAYS, ORAL; 25 MG EVERY OTHER DAY, ORAL
     Route: 048
     Dates: start: 20061003
  2. REVLIMID [Suspect]
     Indication: MULTIPLE MYELOMA
     Dosage: 25 MG, X21 DAYS EVERY 28 DAYS, ORAL; 25 MG EVERY OTHER DAY, ORAL
     Route: 048
     Dates: start: 20080301
  3. REVLIMID [Suspect]
  4. PROZAC [Concomitant]
  5. DECADRON [Concomitant]

REACTIONS (18)
  - ASTHENIA [None]
  - CHILLS [None]
  - DEHYDRATION [None]
  - DISEASE PROGRESSION [None]
  - ERYTHEMA OF EYELID [None]
  - FATIGUE [None]
  - FEELING COLD [None]
  - HOT FLUSH [None]
  - MEMORY IMPAIRMENT [None]
  - MENTAL STATUS CHANGES [None]
  - NAUSEA [None]
  - PANCYTOPENIA [None]
  - PRURITUS [None]
  - PYREXIA [None]
  - RASH [None]
  - RECTAL HAEMORRHAGE [None]
  - TREMOR [None]
  - VOMITING [None]
